FAERS Safety Report 9026633 (Version 1)
Quarter: 2013Q1

REPORT INFORMATION
  Report Type: Spontaneous
  Country: US (occurrence: US)
  Receive Date: 20130123
  Receipt Date: 20130123
  Transmission Date: 20140127
  Serious: Yes (Other)
  Sender: FDA-Public Use
  Company Number: PHEH2013US001518

PATIENT
  Age: 64 Year
  Sex: Female

DRUGS (7)
  1. RECLAST [Suspect]
     Dosage: UNK
     Route: 042
  2. LISINOPRIL [Suspect]
     Dosage: UNK
  3. VITAMIN D [Suspect]
     Dosage: UNK
  4. CALCIUM [Suspect]
     Dosage: UNK
  5. SYNTHROID [Suspect]
     Dosage: 75 UG, UNK
     Route: 048
  6. SYNTHROID [Suspect]
     Dosage: 50 UG, UNK
     Route: 048
  7. LIPITOR [Suspect]
     Dosage: UNK

REACTIONS (5)
  - Nephrolithiasis [Unknown]
  - Sleep disorder [Unknown]
  - Somnolence [Unknown]
  - Toothache [Not Recovered/Not Resolved]
  - Blood pressure increased [Unknown]
